FAERS Safety Report 16249814 (Version 1)
Quarter: 2019Q2

REPORT INFORMATION
  Report Type: Spontaneous
  Country: US (occurrence: US)
  Receive Date: 20190429
  Receipt Date: 20190429
  Transmission Date: 20190711
  Serious: No
  Sender: FDA-Public Use
  Company Number: US-MYLANLABS-2019M1039191

PATIENT
  Sex: Female

DRUGS (1)
  1. ESTRADIOL MYLAN [Suspect]
     Active Substance: ESTRADIOL
     Indication: HORMONE REPLACEMENT THERAPY
     Dosage: UNK

REACTIONS (3)
  - Psychiatric symptom [Unknown]
  - Emotional disorder [Unknown]
  - Crying [Unknown]
